FAERS Safety Report 7634474-X (Version None)
Quarter: 2011Q3

REPORT INFORMATION
  Report Type: 
  Country: None (occurrence: None)
  Receive Date: 20110725
  Receipt Date: 20110723
  Transmission Date: 20111222
  Serious: Yes (Hospitalization, Other)
  Sender: FDA-Public Use
  Company Number: PHHO2008US08820

PATIENT
  Sex: Female
  Weight: 74.1 kg

DRUGS (7)
  1. DIOVAN [Concomitant]
  2. LIPITOR [Concomitant]
  3. ATENOLOL [Concomitant]
  4. ASPIRIN [Concomitant]
  5. NAMENDA [Concomitant]
  6. EXELON [Suspect]
  7. ACTONEL [Concomitant]

REACTIONS (11)
  - ATELECTASIS [None]
  - URINARY TRACT INFECTION [None]
  - HYPERTENSION [None]
  - ACTIVITIES OF DAILY LIVING IMPAIRED [None]
  - AMNESIA [None]
  - FALL [None]
  - DEMENTIA ALZHEIMER'S TYPE [None]
  - COGNITIVE DISORDER [None]
  - SYNCOPE [None]
  - SINUS BRADYCARDIA [None]
  - DIARRHOEA [None]
